FAERS Safety Report 12385575 (Version 3)
Quarter: 2016Q2

REPORT INFORMATION
  Report Type: Spontaneous
  Country: US (occurrence: US)
  Receive Date: 20160519
  Receipt Date: 20160630
  Transmission Date: 20160815
  Serious: Yes (Hospitalization)
  Sender: FDA-Public Use
  Company Number: US-GLAXOSMITHKLINE-US2016GSK069076

PATIENT
  Age: 48 Year
  Sex: Female

DRUGS (4)
  1. SUMATRIPTAN. [Suspect]
     Active Substance: SUMATRIPTAN
     Dosage: 20 MG, PRN
  2. SUMATRIPTAN. [Suspect]
     Active Substance: SUMATRIPTAN
     Indication: MIGRAINE
     Dosage: 20 MG, PRN
     Dates: start: 2014
  3. SUMATRIPTAN. [Suspect]
     Active Substance: SUMATRIPTAN
     Dosage: 20 MG, PRN
  4. IMITREX [Suspect]
     Active Substance: SUMATRIPTAN SUCCINATE
     Indication: MIGRAINE

REACTIONS (5)
  - Drug dose omission [Unknown]
  - Migraine [Recovered/Resolved]
  - Product quality issue [Not Recovered/Not Resolved]
  - Drug ineffective [Unknown]
  - Underdose [Unknown]
